FAERS Safety Report 7715352-4 (Version None)
Quarter: 2011Q3

REPORT INFORMATION
  Report Type: 
  Country: None (occurrence: None)
  Receive Date: 20110810
  Receipt Date: 20110617
  Transmission Date: 20111222
  Serious: No
  Sender: FDA-Public Use
  Company Number: 1000021665

PATIENT
  Age: 52 Year
  Sex: Female

DRUGS (1)
  1. SAVELLA [Suspect]
     Dosage: ORAL
     Route: 048
     Dates: start: 20110601, end: 20110601

REACTIONS (3)
  - NAUSEA [None]
  - VOMITING [None]
  - BLISTER [None]
